FAERS Safety Report 9917248 (Version 1)
Quarter: 2014Q1

REPORT INFORMATION
  Report Type: Spontaneous
  Country: US (occurrence: US)
  Receive Date: 20140221
  Receipt Date: 20140221
  Transmission Date: 20141002
  Serious: Yes (Other)
  Sender: FDA-Public Use
  Company Number: US-TAKEDA-2014TUS001227

PATIENT
  Sex: 0

DRUGS (1)
  1. ACTOS [Suspect]

REACTIONS (1)
  - Surgery [Unknown]
